FAERS Safety Report 13995740 (Version 5)
Quarter: 2017Q4

REPORT INFORMATION
  Report Type: Spontaneous
  Country: PR (occurrence: PR)
  Receive Date: 20170921
  Receipt Date: 20171214
  Transmission Date: 20180321
  Serious: Yes (Other)
  Sender: FDA-Public Use
  Company Number: PR-PFIZER INC-2017406075

PATIENT
  Age: 51 Year
  Sex: Female

DRUGS (1)
  1. SUTENT [Suspect]
     Active Substance: SUNITINIB MALATE
     Indication: RENAL CANCER METASTATIC
     Dosage: 37.5 MG, CYCLIC (3 WEEKS ON AND 1 WEEK OFF)
     Dates: start: 20170915, end: 20171120

REACTIONS (12)
  - Dysgeusia [Unknown]
  - Abdominal pain [Unknown]
  - Dyspepsia [Unknown]
  - Nephritis [Unknown]
  - Abdominal infection [Unknown]
  - Nausea [Unknown]
  - Decreased appetite [Unknown]
  - Dizziness [Unknown]
  - Arthralgia [Unknown]
  - Pulmonary pain [Unknown]
  - Neoplasm progression [Unknown]
  - Pain [Unknown]

NARRATIVE: CASE EVENT DATE: 2017
